FAERS Safety Report 16451125 (Version 1)
Quarter: 2019Q3

REPORT INFORMATION
  Report Type: Spontaneous
  Country: US (occurrence: US)
  Receive Date: 20190618
  Receipt Date: 20190618
  Transmission Date: 20191004
  Serious: Yes (Hospitalization, Other)
  Sender: FDA-Public Use
  Company Number: None

PATIENT
  Age: 76 Year
  Sex: Male
  Weight: 80 kg

DRUGS (9)
  1. DOCUSATE [Concomitant]
     Active Substance: DOCUSATE
     Dates: start: 20190430, end: 20190507
  2. ACYCLOVIR. [Concomitant]
     Active Substance: ACYCLOVIR
     Dates: start: 20131015
  3. ALLOPURINOL. [Concomitant]
     Active Substance: ALLOPURINOL
     Dates: start: 20131015
  4. YESCARTA [Suspect]
     Active Substance: AXICABTAGENE CILOLEUCEL
     Indication: DIFFUSE LARGE B-CELL LYMPHOMA
     Dosage: ?          OTHER FREQUENCY:ONCE;?
     Route: 041
     Dates: start: 20190503, end: 20190503
  5. ONDANSETRON [Concomitant]
     Active Substance: ONDANSETRON
     Dates: start: 20190429, end: 20190501
  6. METOPROLOL TARTRATE. [Concomitant]
     Active Substance: METOPROLOL TARTRATE
     Dates: start: 20190429
  7. COTRIMOXAZOLE DS [Concomitant]
     Dates: start: 20170508, end: 20190515
  8. MEXTOTREXATE [Concomitant]
     Dates: start: 20190228, end: 20190430
  9. FLUTICASONE. [Concomitant]
     Active Substance: FLUTICASONE
     Dates: start: 20131015

REACTIONS (4)
  - Febrile neutropenia [None]
  - Tumour lysis syndrome [None]
  - Aphasia [None]
  - Cytokine release syndrome [None]

NARRATIVE: CASE EVENT DATE: 20190510
